FAERS Safety Report 8066827-2 (Version None)
Quarter: 2012Q1

REPORT INFORMATION
  Report Type: 
  Country: None (occurrence: None)
  Receive Date: 20120124
  Receipt Date: 20120120
  Transmission Date: 20120608
  Serious: Yes (Hospitalization, Disabling, Other)
  Sender: FDA-Public Use
  Company Number: US-ROCHE-423642

PATIENT
  Sex: Male
  Weight: 81.6 kg

DRUGS (6)
  1. COZAAR [Concomitant]
     Indication: HYPERTENSION
  2. ACCUTANE [Suspect]
     Dosage: 40 MG AFTER BIWEEKLY FOR 1 MONTH. 40MG EVERY 10TH DAY AFTER THE SECOND MONTH.
     Route: 048
  3. CLARITIN-D [Concomitant]
  4. ACCUTANE [Suspect]
     Indication: ACNE CYSTIC
     Dosage: INDICATION REPORTED AS CYSTIC ACNE AND FOLLICULITIS.
     Route: 048
  5. FIORICET [Concomitant]
  6. ACCUTANE [Suspect]
     Dosage: 40 MG BIWEEKLY AFTER THE FIRST MONTH. 40 MG EVERY THIRD DAY AFTER THE THIRD MONTH.
     Route: 048

REACTIONS (13)
  - INTESTINAL HAEMORRHAGE [None]
  - HYPOPHOSPHATAEMIA [None]
  - URINARY RETENTION [None]
  - SINUS ARRHYTHMIA [None]
  - ANXIETY [None]
  - COLITIS ULCERATIVE [None]
  - HYPERTENSION [None]
  - CROHN'S DISEASE [None]
  - GASTROINTESTINAL DISORDER [None]
  - INFLAMMATORY BOWEL DISEASE [None]
  - COLITIS [None]
  - DEPRESSION [None]
  - SUPRAVENTRICULAR TACHYCARDIA [None]
